FAERS Safety Report 8002492-8 (Version None)
Quarter: 2011Q4

REPORT INFORMATION
  Report Type: 
  Country: None (occurrence: None)
  Receive Date: 20111222
  Receipt Date: 20111210
  Transmission Date: 20120403
  Serious: Yes (Hospitalization)
  Sender: FDA-Public Use
  Company Number: US-PFIZER INC-2011301454

PATIENT
  Sex: Female
  Weight: 55 kg

DRUGS (9)
  1. WARFARIN [Concomitant]
     Dosage: UNK
     Dates: start: 20110525
  2. POTASSIUM CHLORIDE [Concomitant]
     Dosage: UNK
     Dates: start: 20111103
  3. LOPRESSOR [Suspect]
     Indication: HYPERTENSION
     Dosage: 25 MG, 1X/DAY
     Route: 048
     Dates: start: 20110419
  4. PEPCID [Concomitant]
     Dosage: UNK
     Dates: start: 20110419
  5. FENTANYL-100 [Concomitant]
     Dosage: UNK
     Dates: start: 20110101
  6. LIPITOR [Concomitant]
     Dosage: UNK
     Dates: start: 20110419
  7. LANOXIN [Concomitant]
     Dosage: UNK
     Dates: start: 20111103
  8. CRIZOTINIB [Suspect]
     Indication: NON-SMALL CELL LUNG CANCER
     Dosage: 250 MG, 2X/DAY
     Route: 048
     Dates: start: 20110628, end: 20111210
  9. MAGNESIUM OXIDE [Concomitant]
     Dosage: UNK
     Dates: start: 20111103

REACTIONS (1)
  - HYPOTENSION [None]
